FAERS Safety Report 19710282 (Version 1)
Quarter: 2021Q3

REPORT INFORMATION
  Report Type: Spontaneous
  Country: US (occurrence: US)
  Receive Date: 20210816
  Receipt Date: 20210816
  Transmission Date: 20211014
  Serious: Yes (Death, Hospitalization)
  Sender: FDA-Public Use
  Company Number: US-JNJFOC-20210805306

PATIENT
  Age: 43 Year
  Sex: Female
  Weight: 134 kg

DRUGS (3)
  1. TYLENOL [Suspect]
     Active Substance: ACETAMINOPHEN
     Indication: SUICIDE ATTEMPT
     Dosage: 25000 MG ONCE AT 22:00
     Route: 048
     Dates: start: 20011221, end: 20011221
  2. WELLBUTRIN [Concomitant]
     Active Substance: BUPROPION HYDROCHLORIDE
     Indication: PRODUCT USED FOR UNKNOWN INDICATION
     Dosage: DOSE AND FREQUENCY UNKNOWN
     Route: 065
     Dates: end: 200109
  3. CELEXA [Concomitant]
     Active Substance: CITALOPRAM HYDROBROMIDE
     Indication: PRODUCT USED FOR UNKNOWN INDICATION
     Dosage: DOSE AND FREQUENCY UNKNOWN
     Route: 065
     Dates: end: 200109

REACTIONS (11)
  - Heart rate increased [Fatal]
  - Blood glucose increased [Fatal]
  - Acute kidney injury [Fatal]
  - Multiple organ dysfunction syndrome [Fatal]
  - Acute hepatic failure [Fatal]
  - Intentional overdose [Fatal]
  - Lymphocyte percentage decreased [Fatal]
  - Blood pressure systolic increased [Fatal]
  - Completed suicide [Fatal]
  - Neutrophil percentage increased [Fatal]
  - Respiratory failure [Fatal]

NARRATIVE: CASE EVENT DATE: 20011222
